FAERS Safety Report 9562844 (Version 3)
Quarter: 2014Q1

REPORT INFORMATION
  Report Type: Report from Study
  Country: US (occurrence: US)
  Receive Date: 20130927
  Receipt Date: 20140120
  Transmission Date: 20141002
  Serious: Yes (Hospitalization, Other)
  Sender: FDA-Public Use
  Company Number: US-ABBVIE-13P-163-1149759-00

PATIENT
  Age: 40 Year
  Sex: Female
  Weight: 127 kg

DRUGS (12)
  1. HUMIRA [Suspect]
     Indication: CROHN^S DISEASE
     Dates: start: 20130723, end: 20130723
  2. HUMIRA [Suspect]
     Dates: start: 20130806, end: 20130806
  3. HUMIRA [Suspect]
     Dates: start: 20130926
  4. HUMIRA [Suspect]
     Dates: start: 20131103
  5. PREDNISONE [Concomitant]
     Indication: PRODUCT USED FOR UNKNOWN INDICATION
     Dosage: TAPERING DOSE
  6. PREDNISONE [Concomitant]
     Dosage: TAPERING DOSE
  7. LEXAPRO [Concomitant]
     Indication: PRODUCT USED FOR UNKNOWN INDICATION
  8. WARFARIN [Concomitant]
     Indication: PRODUCT USED FOR UNKNOWN INDICATION
  9. WARFARIN [Concomitant]
     Dates: start: 20131112
  10. ATIVAN [Concomitant]
     Indication: PRODUCT USED FOR UNKNOWN INDICATION
  11. MULTIVITAMIN [Concomitant]
     Indication: PRODUCT USED FOR UNKNOWN INDICATION
  12. IRON [Concomitant]
     Indication: PRODUCT USED FOR UNKNOWN INDICATION

REACTIONS (11)
  - Swelling face [Recovering/Resolving]
  - Eyelid oedema [Recovering/Resolving]
  - Pain in extremity [Recovered/Resolved]
  - Local swelling [Recovering/Resolving]
  - Ear swelling [Recovering/Resolving]
  - Oedema peripheral [Recovered/Resolved]
  - Gait disturbance [Recovered/Resolved]
  - Nasopharyngitis [Not Recovered/Not Resolved]
  - Throat irritation [Not Recovered/Not Resolved]
  - Rhinorrhoea [Not Recovered/Not Resolved]
  - Hypoalbuminaemia [Unknown]
